FAERS Safety Report 7752661-7 (Version None)
Quarter: 2011Q3

REPORT INFORMATION
  Report Type: 
  Country: None (occurrence: None)
  Receive Date: 20110915
  Receipt Date: 20110908
  Transmission Date: 20111222
  Serious: Yes (Death, Other)
  Sender: FDA-Public Use
  Company Number: DE-ROCHE-797947

PATIENT
  Sex: Female
  Weight: 70 kg

DRUGS (5)
  1. FENISTIL (DIMETINDENE) [Concomitant]
     Indication: PREMEDICATION
     Route: 042
     Dates: start: 20110609, end: 20110609
  2. RANITIDINE HCL [Concomitant]
     Indication: PREMEDICATION
     Route: 042
     Dates: start: 20110609, end: 20110609
  3. AVASTIN [Suspect]
     Dosage: FIRST LINE
     Route: 042
     Dates: start: 20110609, end: 20110609
  4. PACLITAXEL [Concomitant]
     Dosage: FIRST LINE
     Route: 042
     Dates: start: 20110609, end: 20110609
  5. DEXAMETHASONE [Concomitant]
     Indication: PREMEDICATION
     Route: 042
     Dates: start: 20110609, end: 20110609

REACTIONS (3)
  - PANCREATITIS HAEMORRHAGIC [None]
  - CIRCULATORY COLLAPSE [None]
  - PNEUMONIA [None]
